FAERS Safety Report 19574061 (Version 1)
Quarter: 2021Q3

REPORT INFORMATION
  Report Type: Report from Study
  Country: None (occurrence: US)
  Receive Date: 20210718
  Receipt Date: 20210718
  Transmission Date: 20211014
  Serious: Yes (Hospitalization)
  Sender: FDA-Public Use
  Company Number: US-ABBVIE-21K-163-3992654-00

PATIENT
  Age: 29 Year
  Sex: Male

DRUGS (2)
  1. HUMIRA [Suspect]
     Active Substance: ADALIMUMAB
     Indication: PSORIASIS
     Route: 058
     Dates: start: 201701, end: 2017
  2. HUMIRA [Suspect]
     Active Substance: ADALIMUMAB
     Route: 058
     Dates: start: 2017

REACTIONS (7)
  - Urticaria [Recovered/Resolved]
  - Loss of personal independence in daily activities [Recovering/Resolving]
  - Wound infection [Unknown]
  - Cough [Recovering/Resolving]
  - Pruritus [Recovering/Resolving]
  - Skin laceration [Unknown]
  - Adverse food reaction [Recovered/Resolved]

NARRATIVE: CASE EVENT DATE: 201701
